FAERS Safety Report 5869682-1 (Version None)
Quarter: 2008Q3

REPORT INFORMATION
  Report Type: 
  Country: None (occurrence: None)
  Receive Date: 20080828
  Receipt Date: 20080817
  Transmission Date: 20090109
  Serious: Yes (Hospitalization)
  Sender: FDA-Public Use
  Company Number: 100#03#2008-04112

PATIENT
  Age: 63 Year
  Sex: Male

DRUGS (4)
  1. VENLAFAXINE HCL [Suspect]
     Indication: DEPRESSION
     Dosage: 150 MG
     Route: 048
  2. TRAZODONE HCL [Suspect]
     Indication: DEPRESSION
     Dosage: 150 MG
     Route: 048
  3. SIMVASTATIN [Concomitant]
  4. ACETYLSALICYLIS ACID (ACETYLASALICYLIC) [Concomitant]

REACTIONS (1)
  - CONVULSION [None]
